FAERS Safety Report 9735644 (Version 1)
Quarter: 2013Q4

REPORT INFORMATION
  Report Type: Spontaneous
  Country: US (occurrence: None)
  Receive Date: 20131205
  Receipt Date: 20131205
  Transmission Date: 20140711
  Serious: Yes (Hospitalization)
  Sender: FDA-Public Use
  Company Number: None

PATIENT
  Age: 71 Year
  Sex: Male
  Weight: 76.1 kg

DRUGS (1)
  1. SULFAMETHOXAZOLE/TRIMETHOPRIM [Suspect]
     Indication: CELLULITIS
     Route: 048
     Dates: start: 20131123, end: 20131203

REACTIONS (5)
  - Hyperkalaemia [None]
  - Drug hypersensitivity [None]
  - Electrocardiogram T wave peaked [None]
  - Refusal of treatment by patient [None]
  - Renal failure acute [None]
